FAERS Safety Report 9746241 (Version 2)
Quarter: 2013Q4

REPORT INFORMATION
  Report Type: Spontaneous
  Country: FR (occurrence: FR)
  Receive Date: 20131211
  Receipt Date: 20131211
  Transmission Date: 20140711
  Serious: Yes (Hospitalization)
  Sender: FDA-Public Use
  Company Number: FR-PFIZER INC-2013335188

PATIENT
  Age: 68 Year
  Sex: Male

DRUGS (6)
  1. TAHOR [Suspect]
     Indication: HYPERCHOLESTEROLAEMIA
     Dosage: 10 MG, 1X/DAY
     Route: 048
     Dates: end: 201309
  2. COUMADINE [Concomitant]
     Dosage: 4 MG, 1X/DAY
     Route: 048
  3. DEPAKINE CHRONO [Concomitant]
     Indication: EPILEPSY
     Dosage: 1000 MG, 1X/DAY
     Route: 048
  4. IMOVANE [Concomitant]
     Dosage: 7.5 MG, 1X/DAY
     Route: 048
  5. SERESTA [Concomitant]
     Dosage: 20 MG, 1X/DAY
     Route: 048
  6. LEVEMIR [Concomitant]
     Indication: INSULIN-REQUIRING TYPE 2 DIABETES MELLITUS
     Dosage: 100 IU/ML
     Route: 058

REACTIONS (4)
  - Pancreatitis acute [Recovered/Resolved]
  - Mesenteric artery stenosis [Unknown]
  - Aortic arteriosclerosis [Unknown]
  - Iliac artery occlusion [Unknown]
